FAERS Safety Report 6829068-X (Version None)
Quarter: 2010Q3

REPORT INFORMATION
  Report Type: 
  Country: None (occurrence: None)
  Receive Date: 20100709
  Receipt Date: 20070227
  Transmission Date: 20110219
  Serious: No
  Sender: FDA-Public Use
  Company Number: US-PFIZER INC-2007003400

PATIENT
  Sex: Female
  Weight: 107 kg

DRUGS (2)
  1. CHANTIX [Suspect]
     Indication: SMOKING CESSATION THERAPY
     Route: 048
     Dates: start: 20061001
  2. ANXIOLYTICS [Concomitant]
     Indication: ANXIETY

REACTIONS (3)
  - AGEUSIA [None]
  - DYSGEUSIA [None]
  - TOOTH DISORDER [None]
